FAERS Safety Report 10271300 (Version 4)
Quarter: 2014Q4

REPORT INFORMATION
  Report Type: Report from Study
  Country: US (occurrence: US)
  Receive Date: 20140701
  Receipt Date: 20141204
  Transmission Date: 20150528
  Serious: Yes (Hospitalization, Other)
  Sender: FDA-Public Use
  Company Number: US-ALEXION PHARMACEUTICALS INC.-A201305144

PATIENT

DRUGS (2)
  1. SOLIRIS [Suspect]
     Active Substance: ECULIZUMAB
     Indication: PAROXYSMAL NOCTURNAL HAEMOGLOBINURIA
     Dosage: UNK
     Route: 042
  2. SOLIRIS [Suspect]
     Active Substance: ECULIZUMAB
     Dosage: 1200 MG, UNK
     Route: 042
     Dates: start: 20130809

REACTIONS (7)
  - Condition aggravated [Unknown]
  - Aplastic anaemia [Unknown]
  - Fatigue [Unknown]
  - Unevaluable event [Unknown]
  - Drug ineffective [Unknown]
  - Unevaluable event [Unknown]
  - Haemoglobin decreased [Unknown]
